FAERS Safety Report 8523356-7 (Version None)
Quarter: 2012Q3

REPORT INFORMATION
  Report Type: 
  Country: None (occurrence: None)
  Receive Date: 20120720
  Receipt Date: 20120709
  Transmission Date: 20120928
  Serious: Yes (Other)
  Sender: FDA-Public Use
  Company Number: TR-ACCORD-014133

PATIENT

DRUGS (3)
  1. CYTARABINE [Suspect]
  2. ETOPOSIDE [Suspect]
  3. MITOXANTRONE [Suspect]

REACTIONS (2)
  - OFF LABEL USE [None]
  - PALMAR-PLANTAR ERYTHRODYSAESTHESIA SYNDROME [None]
